FAERS Safety Report 6720266-2 (Version None)
Quarter: 2010Q2

REPORT INFORMATION
  Report Type: 
  Country: None (occurrence: None)
  Receive Date: 20100511
  Receipt Date: 20100503
  Transmission Date: 20101027
  Serious: Yes (Hospitalization)
  Sender: FDA-Public Use
  Company Number: US-PFIZER INC-2009312764

PATIENT
  Sex: Male

DRUGS (26)
  1. DILANTIN-125 [Suspect]
     Indication: CONVULSION
     Dosage: UNK
     Dates: start: 20091101
  2. APIXABAN [Suspect]
     Indication: THROMBOSIS PROPHYLAXIS
     Dosage: 10 MG 1 DAY
     Route: 048
     Dates: start: 20090511
  3. WARFARIN SODIUM [Suspect]
     Indication: THROMBOSIS PROPHYLAXIS
     Dosage: 2.2 MG 1 DAY
     Route: 048
     Dates: start: 20090511
  4. PLACEBO [Suspect]
     Indication: THROMBOSIS PROPHYLAXIS
     Dosage: UNK
     Route: 048
     Dates: start: 20090511
  5. ALBUTEROL [Concomitant]
  6. ACETYLSALICYLIC ACID [Concomitant]
  7. CAPSAICIN [Concomitant]
  8. CITALOPRAM HYDROBROMIDE [Concomitant]
  9. CYCLOBENZAPRINE HYDROCHLORIDE [Concomitant]
  10. DIGOXIN [Concomitant]
  11. DILTIAZEM HYDROCHLORIDE [Concomitant]
  12. DOCUSATE [Concomitant]
  13. EPLERENONE [Concomitant]
  14. FERROUS SULFATE [Concomitant]
  15. FLUNISOLIDE [Concomitant]
  16. FORMOTEROL FUMARATE [Concomitant]
  17. FUROSEMIDE [Concomitant]
  18. INSULIN HUMAN [Concomitant]
  19. INSULIN ASPART [Concomitant]
  20. LOSARTAN [Concomitant]
  21. METOLAZONE [Concomitant]
  22. OMEPRAZOLE [Concomitant]
  23. POTASSIUM CHLORIDE [Concomitant]
  24. PRAVASTATIN SODIUM [Concomitant]
  25. GLUCOSE [Concomitant]
  26. PSYLLIUM [Concomitant]

REACTIONS (15)
  - ABNORMAL BEHAVIOUR [None]
  - AGITATION [None]
  - ANTICONVULSANT DRUG LEVEL INCREASED [None]
  - APHASIA [None]
  - ATELECTASIS [None]
  - BLOOD THYROID STIMULATING HORMONE DECREASED [None]
  - BRONCHOPNEUMONIA [None]
  - CEREBRAL ATROPHY [None]
  - CONFUSIONAL STATE [None]
  - CRYING [None]
  - DRUG LEVEL INCREASED [None]
  - HAEMOGLOBIN DECREASED [None]
  - MENTAL STATUS CHANGES [None]
  - PLEURAL EFFUSION [None]
  - SOMNOLENCE [None]
